FAERS Safety Report 7996644-0 (Version None)
Quarter: 2011Q4

REPORT INFORMATION
  Report Type: 
  Country: None (occurrence: None)
  Receive Date: 20111221
  Receipt Date: 20111206
  Transmission Date: 20120403
  Serious: Yes (Life-Threatening, Hospitalization)
  Sender: FDA-Public Use
  Company Number: GB-RANBAXY-2011US-51174

PATIENT
  Age: 18 Month
  Sex: Male

DRUGS (1)
  1. ACETAMINOPHEN [Suspect]
     Indication: PRODUCT USED FOR UNKNOWN INDICATION
     Dosage: UNK
     Route: 048

REACTIONS (5)
  - HYPOTHERMIA [None]
  - METABOLIC ACIDOSIS [None]
  - TOXICITY TO VARIOUS AGENTS [None]
  - LOSS OF CONSCIOUSNESS [None]
  - HEPATOTOXICITY [None]
